FAERS Safety Report 10272422 (Version 1)
Quarter: 2014Q2

REPORT INFORMATION
  Report Type: Spontaneous
  Country: US (occurrence: None)
  Receive Date: 20140627
  Receipt Date: 20140627
  Transmission Date: 20141212
  Serious: Yes (Hospitalization)
  Sender: FDA-Public Use
  Company Number: None

PATIENT
  Age: 56 Year
  Sex: Male
  Weight: 101.3 kg

DRUGS (1)
  1. BUPROPION [Suspect]
     Indication: SMOKING CESSATION THERAPY
     Route: 048
     Dates: start: 20140224, end: 20140407

REACTIONS (4)
  - Pyrexia [None]
  - Asthenia [None]
  - Chills [None]
  - Blood alkaline phosphatase increased [None]
